FAERS Safety Report 20582648 (Version 2)
Quarter: 2022Q2

REPORT INFORMATION
  Report Type: Report from Study
  Country: US (occurrence: US)
  Receive Date: 20220311
  Receipt Date: 20220413
  Transmission Date: 20220721
  Serious: Yes (Other)
  Sender: FDA-Public Use
  Company Number: US-ABBVIE-22K-163-4309069-00

PATIENT
  Sex: Male

DRUGS (2)
  1. IMBRUVICA [Suspect]
     Active Substance: IBRUTINIB
     Indication: Product used for unknown indication
     Route: 048
  2. IMBRUVICA [Suspect]
     Active Substance: IBRUTINIB
     Route: 048

REACTIONS (7)
  - Skin fissures [Unknown]
  - Joint swelling [Unknown]
  - Decreased appetite [Unknown]
  - Pain in extremity [Unknown]
  - Fatigue [Unknown]
  - Peripheral swelling [Unknown]
  - Erythema [Unknown]
